FAERS Safety Report 7163921-5 (Version None)
Quarter: 2010Q4

REPORT INFORMATION
  Report Type: 
  Country: None (occurrence: None)
  Receive Date: 20101215
  Receipt Date: 20101202
  Transmission Date: 20110411
  Serious: Yes (Other)
  Sender: FDA-Public Use
  Company Number: US-WATSON-2010-15602

PATIENT
  Age: 27 Year
  Sex: Female
  Weight: 122 kg

DRUGS (3)
  1. LEVONORGESTREL [Suspect]
     Indication: POST COITAL CONTRACEPTION
     Dosage: 1ST TABLET PO WITHIN 72 HRS OF UNPROTECTED SEX,  2ND TABLET PO
     Route: 048
     Dates: start: 20101126, end: 20101127
  2. VITAMINS [Concomitant]
     Indication: PRODUCT USED FOR UNKNOWN INDICATION
     Dosage: UNK
     Route: 048
  3. ANTACID                            /00183701/ [Concomitant]
     Indication: PRODUCT USED FOR UNKNOWN INDICATION
     Dosage: TAKES OTC ANTACIDS
     Route: 048

REACTIONS (6)
  - ABDOMINAL PAIN [None]
  - DEPRESSED MOOD [None]
  - DIZZINESS [None]
  - METRORRHAGIA [None]
  - NAUSEA [None]
  - SUICIDAL IDEATION [None]
